FAERS Safety Report 11206345 (Version 1)
Quarter: 2015Q2

REPORT INFORMATION
  Report Type: Spontaneous
  Country: IN (occurrence: IN)
  Receive Date: 20150622
  Receipt Date: 20150622
  Transmission Date: 20150821
  Serious: Yes (Other)
  Sender: FDA-Public Use
  Company Number: IN-MYLANLABS-2015M1019566

PATIENT

DRUGS (7)
  1. FLUPENTIXOL [Concomitant]
     Active Substance: FLUPENTIXOL
     Dosage: 40MG/2W
     Route: 065
  2. MEMANTINE [Suspect]
     Active Substance: MEMANTINE
     Indication: OFF LABEL USE
  3. FLUPENTIXOL [Concomitant]
     Active Substance: FLUPENTIXOL
     Indication: PRODUCT USED FOR UNKNOWN INDICATION
     Dosage: 60MG/15D FOR 96W, DECREASED TO 40MG/2W
     Route: 065
  4. VALPROATE MAGNESIUM [Concomitant]
     Active Substance: VALPROATE MAGNESIUM
     Indication: PRODUCT USED FOR UNKNOWN INDICATION
     Dosage: 1200MG
     Route: 065
  5. AMISULPRIDE [Concomitant]
     Active Substance: AMISULPRIDE
     Indication: PRODUCT USED FOR UNKNOWN INDICATION
     Dosage: 300MG FOR 24W, DECREASED TO 200MG/D
     Route: 065
  6. AMISULPRIDE [Concomitant]
     Active Substance: AMISULPRIDE
     Dosage: 200MG/D
     Route: 065
  7. MEMANTINE [Suspect]
     Active Substance: MEMANTINE
     Indication: SCHIZOPHRENIA, UNDIFFERENTIATED TYPE
     Dosage: 20MG
     Route: 065

REACTIONS (2)
  - Psychotic disorder [Unknown]
  - Off label use [Unknown]
